FAERS Safety Report 5861007-0 (Version None)
Quarter: 2008Q3

REPORT INFORMATION
  Report Type: 
  Country: None (occurrence: None)
  Receive Date: 20080827
  Receipt Date: 20080201
  Transmission Date: 20090109
  Serious: No
  Sender: FDA-Public Use
  Company Number: US-ABBOTT-08P-163-0436260-00

PATIENT
  Sex: Female
  Weight: 83.082 kg

DRUGS (4)
  1. NIASPAN [Suspect]
     Indication: HIGH DENSITY LIPOPROTEIN INCREASED
     Route: 048
     Dates: start: 20071101, end: 20071220
  2. NIASPAN [Suspect]
     Route: 048
     Dates: start: 20071220, end: 20071227
  3. NIASPAN [Suspect]
     Route: 048
     Dates: start: 20071227, end: 20080101
  4. NIASPAN [Suspect]
     Route: 048
     Dates: start: 20080101, end: 20080206

REACTIONS (3)
  - ENDODONTIC PROCEDURE [None]
  - FLUSHING [None]
  - HEAT RASH [None]
